FAERS Safety Report 9700081 (Version 2)
Quarter: 2013Q4

REPORT INFORMATION
  Report Type: Report from Study
  Country: CA (occurrence: CA)
  Receive Date: 20131121
  Receipt Date: 20131121
  Transmission Date: 20140711
  Serious: Yes (Other)
  Sender: FDA-Public Use
  Company Number: CA-JNJFOC-20131014079

PATIENT
  Age: 29 Year
  Sex: Female
  Weight: 86.18 kg

DRUGS (4)
  1. STELARA [Suspect]
     Indication: PSORIASIS
     Dosage: 1.0 ML SYRINGE
     Route: 058
  2. STELARA [Suspect]
     Indication: PSORIASIS
     Dosage: 1.0 ML SYRINGE
     Route: 058
     Dates: start: 20130831
  3. LOVENOX [Suspect]
     Indication: THROMBOSIS
     Dosage: INITIALLY ON 40 MG AND THEN ON 60 MG
     Route: 065
     Dates: start: 201212, end: 201306
  4. LOVENOX [Suspect]
     Indication: THROMBOSIS
     Dosage: INITIALLY ON 40 MG AND THEN ON 60 MG
     Route: 065

REACTIONS (4)
  - Premature labour [Recovered/Resolved]
  - Exposure during pregnancy [Recovered/Resolved]
  - Thrombosis [Unknown]
  - Drug ineffective [Unknown]
